FAERS Safety Report 25624339 (Version 2)
Quarter: 2025Q3

REPORT INFORMATION
  Report Type: Spontaneous
  Country: US (occurrence: US)
  Receive Date: 20250730
  Receipt Date: 20250804
  Transmission Date: 20251021
  Serious: No
  Sender: PFIZER
  Company Number: US-PFIZER INC-202500153403

PATIENT
  Age: 21 Year
  Sex: Female
  Weight: 67.12 kg

DRUGS (5)
  1. PAXLOVID [Suspect]
     Active Substance: NIRMATRELVIR\RITONAVIR
     Indication: COVID-19 treatment
     Route: 048
     Dates: start: 20250727
  2. PEPTO-BISMOL [Concomitant]
     Active Substance: BISMUTH SUBSALICYLATE
  3. ADVIL [Concomitant]
     Active Substance: IBUPROFEN
     Indication: Pyrexia
     Dates: start: 20250727
  4. ADVIL [Concomitant]
     Active Substance: IBUPROFEN
     Indication: Pain
  5. HUMALOG [Concomitant]
     Active Substance: INSULIN LISPRO
     Indication: Type 1 diabetes mellitus

REACTIONS (2)
  - Back pain [Unknown]
  - Arthralgia [Unknown]

NARRATIVE: CASE EVENT DATE: 20250729
